FAERS Safety Report 10330717 (Version 1)
Quarter: 2014Q3

REPORT INFORMATION
  Report Type: Spontaneous
  Country: GB (occurrence: None)
  Receive Date: 20140717
  Receipt Date: 20140717
  Transmission Date: 20150326
  Serious: Yes (Hospitalization)
  Sender: FDA-Public Use
  Company Number: FK201402767

PATIENT
  Age: 55 Year
  Sex: Female

DRUGS (13)
  1. POTASSIUM CHLORIDE. [Suspect]
     Active Substance: POTASSIUM CHLORIDE
     Indication: PARENTERAL NUTRITION
     Dosage: 25 ML, 6 IN 1 D, INTRAVENOUS DRIP
     Route: 041
     Dates: start: 201406
  2. SODIUM CHLORIDE. [Suspect]
     Active Substance: SODIUM CHLORIDE
     Indication: PARENTERAL NUTRITION
     Dosage: 21.44 ML, 6 IN 1 WK, INTRAVENOUS DRIP
     Route: 041
  3. AMINOVEN [Suspect]
     Active Substance: AMINO ACIDS
     Indication: PARENTERAL NUTRITION
     Dosage: 35O.19 ML, 6 IN 1 WEK, INTRAVENOUS
     Route: 041
  4. GLUCOSE 50% [Suspect]
     Active Substance: DEXTROSE
     Indication: PARENTERAL NUTRITION
     Dosage: 500 ML, 6 IN 1 WK, INTRAVENOUS
     Route: 041
  5. COPPER SULFATE (COPPER SULFATE) (COPPER SULFATE) [Suspect]
     Active Substance: CUPRIC SULFATE
     Indication: PARENTERAL NUTRITION
     Dosage: 1 ML, 6 IN 1 WEEK INTRAVANEOUS DRIP
     Route: 041
     Dates: start: 201406
  6. WATER FOR INJECTIONS [Suspect]
     Active Substance: WATER
     Indication: PARENTERAL NUTRITION
     Dosage: 1.531 ML, 6 IN WK, INTRAVENOUS
     Route: 041
     Dates: start: 201406
  7. MAGNESIUM SULFATE [Suspect]
     Active Substance: MAGNESIUM SULFATE
     Indication: PARENTERAL NUTRITION
     Dosage: 8.37 ML, 6 IN 1 WK, INTRAVENOUS
     Route: 041
     Dates: start: 201406
  8. CERNEVIT [Suspect]
     Active Substance: VITAMINS
     Indication: PARENTERAL NUTRITION
     Dosage: 5 ML, 6 IN 1 WK, INTRAVENOUS DRIP
     Route: 041
     Dates: start: 201406
  9. CALCIUM CHLORIDE. [Suspect]
     Active Substance: CALCIUM CHLORIDE
     Indication: PARENTERAL NUTRITION
     Dosage: 12.5 ML, 6 IN 1 WK, INTRAVENOUS
     Route: 042
     Dates: start: 201406
  10. ZINC SULFATE [Suspect]
     Active Substance: ZINC SULFATE\ZINC SULFATE ANHYDROUS
     Indication: PARENTERAL NUTRITION
     Dosage: 5 ML, 6 IN 1 D INTRAVENOUS DRIP
     Route: 041
     Dates: start: 201406
  11. FERRIC CHLORIDE [Suspect]
     Active Substance: FERRIC CHLORIDE
     Indication: PARENTERAL NUTRITION
     Dosage: 11.17 ML, 6 IN 1 WK, INTRAVENOUS
     Route: 042
     Dates: start: 201406
  12. SODIUM SELENITE [Suspect]
     Active Substance: SODIUM SELENITE
     Indication: PARENTERAL NUTRITION
     Dosage: 2 ML, 6 IN 1 WK, INTRAVENOUS DRIP
     Route: 041
     Dates: start: 201406
  13. SODIUM GLYCERPHOSPHATE [Suspect]
     Active Substance: SODIUM GLYCEROPHOSPHATE
     Indication: PARENTERAL NUTRITION
     Dosage: 21.44 ML, 6 IN 1 WK, INTRAVENOUS DRIP
     Route: 041
     Dates: start: 201406

REACTIONS (6)
  - Chills [None]
  - Crying [None]
  - Feeling cold [None]
  - Tremor [None]
  - Back pain [None]
  - Moaning [None]

NARRATIVE: CASE EVENT DATE: 20140707
